FAERS Safety Report 20785703 (Version 1)
Quarter: 2022Q2

REPORT INFORMATION
  Report Type: Spontaneous
  Country: US (occurrence: None)
  Receive Date: 20220504
  Receipt Date: 20220504
  Transmission Date: 20220721
  Serious: No
  Sender: FDA-Public Use
  Company Number: US-ROCHE-2830178

PATIENT
  Sex: Female
  Weight: 92.5 kg

DRUGS (1)
  1. OCREVUS [Suspect]
     Active Substance: OCRELIZUMAB
     Indication: Relapsing-remitting multiple sclerosis
     Dosage: ONGOING; YES?LAST DATE OF ADMINISTRATION: 04/DEC/2021
     Route: 042

REACTIONS (1)
  - Dermatomyositis [Unknown]
